FAERS Safety Report 5325094-0 (Version None)
Quarter: 2007Q2

REPORT INFORMATION
  Report Type: 
  Country: None (occurrence: None)
  Receive Date: 20070511
  Receipt Date: 20070511
  Transmission Date: 20071010
  Serious: Yes (Death)
  Sender: FDA-Public Use
  Company Number: None

PATIENT
  Age: 37 Year
  Sex: Male
  Weight: 90.7194 kg

DRUGS (1)
  1. METHADONE HCL [Suspect]
     Indication: FEELING OF RELAXATION
     Dosage: NOT SURE
     Dates: start: 20070212, end: 20070213

REACTIONS (7)
  - ACCIDENTAL DEATH [None]
  - DRUG ABUSER [None]
  - DRUG TOXICITY [None]
  - FOAMING AT MOUTH [None]
  - INCORRECT DOSE ADMINISTERED [None]
  - PULMONARY OEDEMA [None]
  - SNORING [None]
